FAERS Safety Report 8961765 (Version 1)
Quarter: 2012Q4

REPORT INFORMATION
  Report Type: 
  Country: BR (occurrence: BR)
  Receive Date: 20121213
  Receipt Date: 20121213
  Transmission Date: 20130627
  Serious: Yes (Other)
  Sender: FDA-Public Use
  Company Number: PHHY2012BR101546

PATIENT
  Age: 85 Year
  Sex: Female
  Weight: 60 kg

DRUGS (2)
  1. TOFRANIL [Suspect]
     Indication: DEPRESSION
     Dosage: 2 DF daily
     Route: 048
     Dates: end: 20121022
  2. DIOVAN AMLO FIX [Suspect]
     Indication: HYPERTENSION
     Dosage: 1 DF daily
     Route: 048

REACTIONS (13)
  - Syncope [Recovered/Resolved]
  - Drug dependence [Unknown]
  - Fall [Unknown]
  - Joint dislocation [Unknown]
  - Pain [Unknown]
  - Hypertension [Unknown]
  - Eye disorder [Not Recovered/Not Resolved]
  - Memory impairment [Not Recovered/Not Resolved]
  - Depressed mood [Not Recovered/Not Resolved]
  - Depression [Recovering/Resolving]
  - Hypersomnia [Not Recovered/Not Resolved]
  - Apathy [Unknown]
  - Headache [Not Recovered/Not Resolved]
